FAERS Safety Report 25824275 (Version 1)
Quarter: 2025Q3

REPORT INFORMATION
  Report Type: Spontaneous
  Country: US (occurrence: US)
  Receive Date: 20250919
  Receipt Date: 20250919
  Transmission Date: 20251021
  Serious: Yes (Hospitalization)
  Sender: AMGEN
  Company Number: US-AMGEN-USASP2025182341

PATIENT
  Age: 62 Year
  Sex: Female

DRUGS (4)
  1. PREDNISONE [Suspect]
     Active Substance: PREDNISONE
     Indication: Systemic lupus erythematosus
     Route: 065
  2. RITUXIMAB [Suspect]
     Active Substance: RITUXIMAB
     Indication: Central nervous system lupus
     Route: 065
  3. LEFLUNOMIDE [Concomitant]
     Active Substance: LEFLUNOMIDE
     Indication: Systemic lupus erythematosus
  4. MYCOPHENOLATE MOFETIL [Concomitant]
     Active Substance: MYCOPHENOLATE MOFETIL
     Indication: Systemic lupus erythematosus

REACTIONS (2)
  - Central nervous system lupus [Recovering/Resolving]
  - Off label use [Unknown]
